FAERS Safety Report 21092778 (Version 4)
Quarter: 2022Q3

REPORT INFORMATION
  Report Type: Report from Study
  Country: US (occurrence: US)
  Receive Date: 20220718
  Receipt Date: 20220914
  Transmission Date: 20221026
  Serious: Yes (Hospitalization, Other)
  Sender: FDA-Public Use
  Company Number: US-Ipsen Biopharmaceuticals, Inc.-2022-16577

PATIENT
  Age: 53 Year
  Sex: Female

DRUGS (10)
  1. XERMELO [Suspect]
     Active Substance: TELOTRISTAT ETHYL
     Indication: Neoplasm malignant
     Dosage: 250 MG, TID
     Route: 048
     Dates: start: 2022, end: 202206
  2. XERMELO [Suspect]
     Active Substance: TELOTRISTAT ETHYL
     Indication: Carcinoid syndrome
     Dosage: 250 MG, TID
     Route: 048
     Dates: start: 20220607
  3. LANREOTIDE ACETATE [Suspect]
     Active Substance: LANREOTIDE ACETATE
     Indication: Product used for unknown indication
     Dosage: UNK, EVERY 4 WEEKS (Q28DAYS)
     Route: 065
  4. LANREOTIDE ACETATE [Suspect]
     Active Substance: LANREOTIDE ACETATE
     Dosage: UNK, EVERY 4 WEEKS
     Route: 065
     Dates: start: 20220803
  5. CHOLESTYRAMINE [Concomitant]
     Active Substance: CHOLESTYRAMINE
     Dosage: BID
  6. SERTRALINE [Concomitant]
     Active Substance: SERTRALINE HYDROCHLORIDE
     Dosage: 50MG, QD
  7. FAMOTIDINE [Concomitant]
     Active Substance: FAMOTIDINE
     Dosage: 40 MG QD
  8. TIZANIDINE [Concomitant]
     Active Substance: TIZANIDINE
     Dosage: 8 MG QHS
  9. BACLOFEN [Concomitant]
     Active Substance: BACLOFEN
     Dosage: 30 MG QD
  10. VITAMIN D2 [Concomitant]
     Active Substance: ERGOCALCIFEROL
     Dosage: 5000 UNITS Q1 WEEK

REACTIONS (15)
  - Hepatobiliary procedural complication [Unknown]
  - Enterocolitis [Unknown]
  - Laboratory test abnormal [Unknown]
  - Pelvic neoplasm [Unknown]
  - Fatigue [Recovering/Resolving]
  - Flatulence [Unknown]
  - Decreased appetite [Recovering/Resolving]
  - Hepatic lesion [Unknown]
  - Red blood cell count decreased [Unknown]
  - Eosinophil count increased [Unknown]
  - Seasonal allergy [Unknown]
  - Sneezing [Unknown]
  - Flushing [Not Recovered/Not Resolved]
  - Nausea [Not Recovered/Not Resolved]
  - Illness [Unknown]

NARRATIVE: CASE EVENT DATE: 20220101
